FAERS Safety Report 19605781 (Version 1)
Quarter: 2021Q3

REPORT INFORMATION
  Report Type: Report from Study
  Country: JP (occurrence: JP)
  Receive Date: 20210723
  Receipt Date: 20210723
  Transmission Date: 20211014
  Serious: Yes (Other)
  Sender: FDA-Public Use
  Company Number: JP-INSUD PHARMA-2107JP00813

PATIENT

DRUGS (1)
  1. CLOBETASOL OINTMENT [Suspect]
     Active Substance: CLOBETASOL
     Indication: ALOPECIA AREATA
     Dosage: EVERY 2 WEEKS FOR 1 YEAR
     Route: 061

REACTIONS (3)
  - Glaucoma [Unknown]
  - Product use issue [Unknown]
  - Ocular hypertension [Recovered/Resolved]
